FAERS Safety Report 7624631-0 (Version None)
Quarter: 2011Q3

REPORT INFORMATION
  Report Type: 
  Country: None (occurrence: None)
  Receive Date: 20110720
  Receipt Date: 20110623
  Transmission Date: 20111222
  Serious: Yes (Hospitalization, Other)
  Sender: FDA-Public Use
  Company Number: PHHY2011FR56551

PATIENT
  Sex: Female
  Weight: 78 kg

DRUGS (3)
  1. ALLOPURINOL [Concomitant]
     Indication: HYPERURICAEMIA
     Dosage: 600 MG, QD
     Route: 048
     Dates: start: 20040801
  2. IMATINIB MESYLATE [Suspect]
     Dosage: 400 MG, UNK
     Route: 048
     Dates: start: 20041009
  3. EPOETIN BETA [Concomitant]
     Indication: CHRONIC MYELOID LEUKAEMIA
     Dosage: 1000 IU, UNK
     Dates: start: 20060501

REACTIONS (2)
  - ABSCESS [None]
  - VASCULAR OCCLUSION [None]
